FAERS Safety Report 19352908 (Version 9)
Quarter: 2022Q2

REPORT INFORMATION
  Report Type: Report from Study
  Country: ES (occurrence: ES)
  Receive Date: 20210531
  Receipt Date: 20220627
  Transmission Date: 20220721
  Serious: Yes (Hospitalization, Other)
  Sender: FDA-Public Use
  Company Number: ES-TAKEDA-2021TUS033994

PATIENT
  Age: 2 Year
  Sex: Male
  Weight: 36 kg

DRUGS (21)
  1. IDURSULFASE [Suspect]
     Active Substance: IDURSULFASE
     Indication: Mucopolysaccharidosis II
     Dosage: 0.5 MILLIGRAM/KILOGRAM, 1/WEEK
     Route: 042
     Dates: start: 20200204, end: 20201020
  2. SULFAMETHOXAZOLE\TRIMETHOPRIM [Concomitant]
     Active Substance: SULFAMETHOXAZOLE\TRIMETHOPRIM
     Indication: Infection prophylaxis
     Dosage: 4 MILLILITER, BID
     Route: 048
  3. SULFAMETHOXAZOLE\TRIMETHOPRIM [Concomitant]
     Active Substance: SULFAMETHOXAZOLE\TRIMETHOPRIM
     Dosage: UNK
     Route: 065
     Dates: end: 202108
  4. ACYCLOVIR [Concomitant]
     Active Substance: ACYCLOVIR
     Indication: Infection prophylaxis
     Dosage: 136 MILLIGRAM, BID
     Route: 048
  5. ACYCLOVIR [Concomitant]
     Active Substance: ACYCLOVIR
     Dosage: UNK
     Route: 065
     Dates: end: 202108
  6. METHYLPREDNISOLONE [Concomitant]
     Active Substance: METHYLPREDNISOLONE
     Dosage: UNK
     Route: 048
     Dates: end: 20210312
  7. METHYLPREDNISOLONE [Concomitant]
     Active Substance: METHYLPREDNISOLONE
     Dosage: UNK
     Route: 048
     Dates: start: 20210526
  8. LANSOPRAZOLE [Concomitant]
     Active Substance: LANSOPRAZOLE
     Dosage: UNK
     Route: 048
     Dates: end: 20210312
  9. LANSOPRAZOLE [Concomitant]
     Active Substance: LANSOPRAZOLE
     Dosage: UNK
     Route: 048
     Dates: start: 20210526
  10. BUDESONIDE [Concomitant]
     Active Substance: BUDESONIDE
     Indication: Bronchospasm
     Dosage: UNK
     Route: 050
  11. MONTELUKAST [Concomitant]
     Active Substance: MONTELUKAST SODIUM
     Indication: Bronchospasm
     Dosage: UNK
     Route: 048
  12. URSODIOL [Concomitant]
     Active Substance: URSODIOL
     Dosage: UNK
     Route: 048
  13. ALBUTEROL [Concomitant]
     Active Substance: ALBUTEROL
     Dosage: UNK
     Route: 050
  14. CYCLOSPORINE [Concomitant]
     Active Substance: CYCLOSPORINE
     Indication: Anal incontinence
     Dosage: UNK
     Route: 065
     Dates: end: 2020
  15. CIPROFLOXACIN [Concomitant]
     Active Substance: CIPROFLOXACIN
     Dosage: UNK
     Route: 065
     Dates: end: 20210810
  16. HYDROCORTISONE [Concomitant]
     Active Substance: HYDROCORTISONE
     Dosage: UNK
     Route: 048
     Dates: start: 20210312
  17. VANCOMYCIN [Concomitant]
     Active Substance: VANCOMYCIN
     Indication: Respiratory syncytial virus infection
     Dosage: UNK
     Route: 065
     Dates: start: 20210730, end: 20210810
  18. VANCOMYCIN [Concomitant]
     Active Substance: VANCOMYCIN
     Indication: Parainfluenzae virus infection
  19. MEROPENEM [Concomitant]
     Active Substance: MEROPENEM
     Indication: Respiratory syncytial virus infection
     Dosage: UNK
     Route: 065
     Dates: start: 20210730, end: 202108
  20. MEROPENEM [Concomitant]
     Active Substance: MEROPENEM
     Indication: Parainfluenzae virus infection
  21. TIOTROPIUM [Concomitant]
     Active Substance: TIOTROPIUM
     Indication: Asthma
     Dosage: UNK
     Route: 050
     Dates: start: 20220114

REACTIONS (4)
  - Graft versus host disease in gastrointestinal tract [Recovered/Resolved]
  - Allogenic bone marrow transplantation therapy [Recovered/Resolved]
  - Diarrhoea [Recovered/Resolved]
  - Staphylococcal bacteraemia [Recovered/Resolved]

NARRATIVE: CASE EVENT DATE: 20200829
